FAERS Safety Report 5728310-6 (Version None)
Quarter: 2008Q2

REPORT INFORMATION
  Report Type: 
  Country: None (occurrence: None)
  Receive Date: 20080506
  Receipt Date: 20080418
  Transmission Date: 20081010
  Serious: Yes (Death, Life-Threatening, Hospitalization, Other)
  Sender: FDA-Public Use
  Company Number: US-BAYER-200614771BWH

PATIENT
  Age: 56 Year
  Sex: Male
  Weight: 45 kg

DRUGS (53)
  1. SORAFENIB [Suspect]
     Indication: NON-SMALL CELL LUNG CANCER
     Dosage: TOTAL DAILY DOSE: 400 MG  UNIT DOSE: 200 MG
     Route: 048
     Dates: start: 20060407, end: 20060523
  2. SORAFENIB [Suspect]
     Dosage: TOTAL DAILY DOSE: 800 MG  UNIT DOSE: 200 MG
     Route: 048
     Dates: start: 20060524, end: 20060722
  3. CARBOPLATIN [Suspect]
     Indication: NON-SMALL CELL LUNG CANCER
     Route: 042
     Dates: start: 20060406, end: 20060425
  4. CARBOPLATIN [Suspect]
     Route: 042
     Dates: start: 20060516, end: 20060718
  5. PACLITAXEL [Suspect]
     Indication: NON-SMALL CELL LUNG CANCER
     Route: 042
     Dates: start: 20060516, end: 20060718
  6. PACLITAXEL [Suspect]
     Dosage: UNIT DOSE: 200 MG/M2
     Route: 042
     Dates: start: 20060406, end: 20060425
  7. FISH OIL [Concomitant]
     Indication: MEDICAL DIET
     Dates: start: 20060101
  8. MULTI-VITAMIN [Concomitant]
     Indication: MEDICAL DIET
     Dates: start: 19960101, end: 20060715
  9. ESTER C [Concomitant]
     Indication: MEDICAL DIET
     Dates: start: 20060101, end: 20060715
  10. PAXIL CR [Concomitant]
     Indication: DEPRESSION
     Dates: start: 20060320
  11. PAXIL CR [Concomitant]
     Dates: start: 20060627
  12. MEGACE [Concomitant]
     Indication: DECREASED APPETITE
     Route: 048
     Dates: start: 20060406
  13. MEGACE [Concomitant]
     Route: 048
     Dates: start: 20060406, end: 20060509
  14. ARANESP [Concomitant]
     Indication: ANAEMIA
     Route: 058
     Dates: start: 20060718, end: 20060718
  15. ARANESP [Concomitant]
     Route: 058
     Dates: start: 20060616, end: 20060616
  16. ARANESP [Concomitant]
     Route: 058
     Dates: start: 20060713, end: 20060713
  17. MARINOL [Concomitant]
     Indication: DECREASED APPETITE
     Dosage: TOTAL DAILY DOSE: 10 MG
     Route: 048
     Dates: start: 20060411
  18. COMPAZINE [Concomitant]
     Indication: NAUSEA
     Dosage: TOTAL DAILY DOSE: 40 MG
     Route: 048
     Dates: start: 20060406
  19. CORAL CALCIUM [Concomitant]
     Indication: MEDICAL DIET
     Route: 048
     Dates: start: 20060418, end: 20060715
  20. GINSENG [Concomitant]
     Indication: MEDICAL DIET
     Route: 048
     Dates: start: 20060301, end: 20060715
  21. NEUMEGA [Concomitant]
     Indication: THROMBOCYTOPENIA
     Route: 058
     Dates: start: 20060502, end: 20060508
  22. NEUPOGEN [Concomitant]
     Indication: NEUTROPENIA
     Route: 058
     Dates: start: 20060508, end: 20060508
  23. RED BLOOD CELLS [Concomitant]
     Indication: ANAEMIA
     Route: 042
     Dates: start: 20060716, end: 20060716
  24. RED BLOOD CELLS [Concomitant]
     Route: 042
     Dates: start: 20060718, end: 20060718
  25. RED BLOOD CELLS [Concomitant]
     Route: 042
     Dates: start: 20060719, end: 20060719
  26. BACTRIM DS [Concomitant]
     Indication: PROPHYLAXIS
     Route: 048
     Dates: start: 20060627
  27. ATIVAN [Concomitant]
     Indication: ANXIETY
     Dosage: TOTAL DAILY DOSE: 2.0 MG
  28. ATIVAN [Concomitant]
     Dates: start: 20060713, end: 20060713
  29. LOMOTIL [Concomitant]
     Indication: DIARRHOEA
     Dates: start: 20060711
  30. AUGMENTIN XR [Concomitant]
     Indication: PROPHYLAXIS
     Route: 048
     Dates: start: 20060627
  31. CIPRO [Concomitant]
     Dosage: TOTAL DAILY DOSE: 800 MG
     Route: 042
     Dates: start: 20060723
  32. FLAGYL [Concomitant]
     Dosage: TOTAL DAILY DOSE: 2000 MG
     Route: 048
     Dates: start: 20060723
  33. TYLENOL [Concomitant]
     Indication: HEADACHE
     Dosage: UNIT DOSE: 325 MG
     Route: 048
  34. XANAX [Concomitant]
     Indication: ANXIETY
     Dosage: TOTAL DAILY DOSE: 1.5 MG
     Dates: start: 20060627
  35. ATROPINE [Concomitant]
     Indication: DIARRHOEA
     Dates: start: 20060713, end: 20060713
  36. DECADRON [Concomitant]
     Indication: FATIGUE
     Dates: start: 20060713, end: 20060713
  37. DECADRON [Concomitant]
     Dates: start: 20060714, end: 20060714
  38. METANX [Concomitant]
     Indication: NEUROPATHY PERIPHERAL
     Dates: start: 20060627
  39. TYLENOL [Concomitant]
     Indication: PROPHYLAXIS
     Dates: start: 20060502, end: 20060502
  40. TYLENOL [Concomitant]
     Dates: start: 20060616, end: 20060616
  41. TYLENOL [Concomitant]
     Dates: start: 20060719, end: 20060719
  42. BENADRYL [Concomitant]
     Indication: PROPHYLAXIS
     Dates: start: 20060719, end: 20060719
  43. BENADRYL [Concomitant]
     Dates: start: 20060616, end: 20060616
  44. BENADRYL [Concomitant]
     Dates: start: 20060502, end: 20060502
  45. LASIX [Concomitant]
     Indication: FLUID OVERLOAD
     Dates: start: 20060719, end: 20060719
  46. LASIX [Concomitant]
     Dates: start: 20060616, end: 20060616
  47. SINGLE DONOR PACKED PLATELETS [Concomitant]
     Indication: THROMBOCYTOPENIA
     Dates: start: 20060502, end: 20060502
  48. FAT EMULSION [Concomitant]
     Route: 042
  49. MAGIC MOUTHWASH [Concomitant]
     Dosage: AS USED: 5 ML
  50. SILVADENE [Concomitant]
     Dosage: TOTAL DAILY DOSE: 800 G
     Route: 061
  51. REGULAR INSULIN [Concomitant]
  52. MORPHINE SULFATE [Concomitant]
     Indication: PAIN
     Dosage: TOTAL DAILY DOSE: 24 MG
  53. HYDROMORPHONE HCL [Concomitant]
     Dosage: TOTAL DAILY DOSE: 48 MG
     Route: 042

REACTIONS (8)
  - CARDIAC FAILURE CONGESTIVE [None]
  - DEHYDRATION [None]
  - LUNG NEOPLASM MALIGNANT [None]
  - RENAL FAILURE [None]
  - RESPIRATORY FAILURE [None]
  - SEPSIS [None]
  - SINUS TACHYCARDIA [None]
  - THROMBOCYTOPENIA [None]
